FAERS Safety Report 7427183-3 (Version None)
Quarter: 2011Q2

REPORT INFORMATION
  Report Type: 
  Country: None (occurrence: None)
  Receive Date: 20110420
  Receipt Date: 20110407
  Transmission Date: 20111010
  Serious: Yes (Hospitalization)
  Sender: FDA-Public Use
  Company Number: CA-JNJFOC-20110202832

PATIENT
  Sex: Male
  Weight: 78 kg

DRUGS (5)
  1. VIT D [Concomitant]
     Route: 065
  2. PURINETHOL [Concomitant]
  3. REMICADE [Suspect]
     Indication: CROHN'S DISEASE
     Route: 042
  4. PROPECIA [Concomitant]
  5. EURO FOLIC [Concomitant]

REACTIONS (2)
  - TRANSIENT ISCHAEMIC ATTACK [None]
  - MULTIPLE SCLEROSIS [None]
